FAERS Safety Report 5507497-4 (Version None)
Quarter: 2007Q4

REPORT INFORMATION
  Report Type: 
  Country: None (occurrence: None)
  Receive Date: 20071102
  Receipt Date: 20071019
  Transmission Date: 20080405
  Serious: Yes (Death, Life-Threatening, Hospitalization)
  Sender: FDA-Public Use
  Company Number: DSJ-2007-06468

PATIENT
  Age: 59 Year
  Sex: Female

DRUGS (12)
  1. OLMESARTAN MEDOXOMIL [Suspect]
     Indication: HYPERTENSION
     Dosage: 20 MG (20 MG, 1 IN 1 D), PER ORAL
     Route: 048
     Dates: start: 20070808, end: 20070821
  2. LEVOFLOXACIN [Suspect]
     Indication: TOXIC EPIDERMAL NECROLYSIS
     Dosage: 400 MG (200 MG, 2 IN1 D), PER ORAL
     Route: 048
     Dates: start: 20070808, end: 20070812
  3. LANSOPRAZOLE [Suspect]
     Indication: GASTRIC ULCER
     Dosage: SEE IMAGE
     Dates: start: 20070723, end: 20070803
  4. LANSOPRAZOLE [Suspect]
     Indication: GASTRIC ULCER
     Dosage: SEE IMAGE
     Dates: start: 20070804, end: 20070821
  5. APRESOLINE [Suspect]
     Indication: HYPERTENSION
     Dosage: 100 MG (50 MG, 2 IN 1 D), PER ORAL;
     Dates: start: 20070730, end: 20070807
  6. OMEGACIN (BIAPENEM) (INJECTION) (BIAPENEM) [Suspect]
     Indication: INTERSTITIAL LUNG DISEASE
     Dosage: 600 MG (300 MG, 2 IN 1 D), INTRAVENOUS DRIP
     Route: 041
     Dates: start: 20070723, end: 20070804
  7. MIDAZOLAM HYDROCHLORIDE [Suspect]
     Indication: SEDATION
     Dosage: CONTINUOUS, INTRAVENOUS (NOT OTHERWISE SPECIFIED)
     Route: 042
     Dates: start: 20070723, end: 20070728
  8. SOSEGON (PENTAZOCINE) (INJECTION) (PENTAZOCINE) [Suspect]
     Indication: SEDATION
     Dosage: CONTINUOUS, INTRAVENOUS (NOT OTHERWISE SPECIFIED)
     Route: 042
     Dates: start: 20070723, end: 20070728
  9. VOLTAREN [Suspect]
     Indication: HYPERTHERMIA
     Dosage: AS NEEDED (25 MG), PER RECTAL
     Route: 054
     Dates: start: 20070723, end: 20070805
  10. PRODIF (INJECTION) [Suspect]
     Indication: INTERSTITIAL LUNG DISEASE
     Dosage: 800MG, 400MG (2 IN 1 D), INTRAVENOUS (NOT OTHERWISE SPECIFIED)
     Dates: start: 20070723, end: 20070804
  11. SULFAMETHOXAZOLE AND TRIMETHOPRIM [Suspect]
     Indication: INTERSTITIAL LUNG DISEASE
     Dosage: 2 GM (1 GM, 2 IN 1 D), PER ORAL
     Route: 048
     Dates: start: 20070725, end: 20070801
  12. NORVASC [Suspect]
     Indication: HYPERTENSION
     Dosage: 5 MG (5 MG, 1 IN 1 D), PER ORAL
     Route: 048
     Dates: start: 20070808, end: 20070821

REACTIONS (5)
  - GASTROINTESTINAL INFECTION [None]
  - HYPERSENSITIVITY [None]
  - RESPIRATORY DISORDER [None]
  - TOXIC EPIDERMAL NECROLYSIS [None]
  - VARICELLA [None]
